FAERS Safety Report 5775210-1 (Version None)
Quarter: 2008Q2

REPORT INFORMATION
  Report Type: 
  Country: None (occurrence: None)
  Receive Date: 20080617
  Receipt Date: 20080616
  Transmission Date: 20081010
  Serious: Yes (Life-Threatening)
  Sender: FDA-Public Use
  Company Number: B0516699A

PATIENT
  Age: 25 Year
  Sex: Male
  Weight: 90 kg

DRUGS (4)
  1. WELLBUTRIN [Suspect]
     Indication: DEPRESSION
     Route: 048
     Dates: start: 20080325, end: 20080401
  2. ALCOHOL [Suspect]
     Indication: DRUG USE FOR UNKNOWN INDICATION
     Route: 065
  3. ZOLPIDEM [Concomitant]
     Indication: INSOMNIA
     Route: 048
  4. IBUROFEN [Concomitant]
     Indication: INFLAMMATION
     Route: 048

REACTIONS (3)
  - DRUG INTERACTION [None]
  - OVERDOSE [None]
  - SUICIDE ATTEMPT [None]
